FAERS Safety Report 20391861 (Version 1)
Quarter: 2022Q1

REPORT INFORMATION
  Report Type: Spontaneous
  Country: DE (occurrence: None)
  Receive Date: 20220128
  Receipt Date: 20220128
  Transmission Date: 20220424
  Serious: Yes (Other)
  Sender: FDA-Public Use
  Company Number: DE-Merck Healthcare KGaA-9213769

PATIENT
  Age: 30 Year
  Sex: Female
  Weight: 96 kg

DRUGS (2)
  1. MAVENCLAD [Suspect]
     Active Substance: CLADRIBINE
     Indication: Relapsing-remitting multiple sclerosis
     Dosage: CYCLE ONE THERAPY
     Route: 048
     Dates: start: 20201005, end: 20201009
  2. MAVENCLAD [Suspect]
     Active Substance: CLADRIBINE
     Dosage: CYCLE TWO THERAPY
     Route: 048
     Dates: start: 20201102, end: 20201106

REACTIONS (3)
  - Complication of pregnancy [Unknown]
  - Maternal exposure before pregnancy [Recovered/Resolved]
  - Normal newborn [Recovered/Resolved]

NARRATIVE: CASE EVENT DATE: 20201225
